FAERS Safety Report 15230753 (Version 2)
Quarter: 2018Q3

REPORT INFORMATION
  Report Type: Spontaneous
  Country: US (occurrence: US)
  Receive Date: 20180802
  Receipt Date: 20180821
  Transmission Date: 20181010
  Serious: No
  Sender: FDA-Public Use
  Company Number: US-SA-2018SA207904

PATIENT
  Age: 39 Year
  Sex: Female

DRUGS (1)
  1. XYZAL ALLERGY 24HR [Suspect]
     Active Substance: LEVOCETIRIZINE DIHYDROCHLORIDE
     Indication: HYPERSENSITIVITY
     Dosage: 1 DF, QD
     Route: 065

REACTIONS (5)
  - Burning sensation [Unknown]
  - Dyspepsia [Recovering/Resolving]
  - Feeding disorder [Unknown]
  - Pain [Unknown]
  - Gastritis [Recovering/Resolving]
